FAERS Safety Report 25303844 (Version 1)
Quarter: 2025Q2

REPORT INFORMATION
  Report Type: Spontaneous
  Country: AT (occurrence: AT)
  Receive Date: 20250513
  Receipt Date: 20250513
  Transmission Date: 20250717
  Serious: Yes (Hospitalization)
  Sender: ABBVIE
  Company Number: AT-ABBVIE-6268460

PATIENT

DRUGS (3)
  1. UPADACITINIB [Suspect]
     Active Substance: UPADACITINIB
     Indication: Colitis ulcerative
     Route: 048
     Dates: start: 202212, end: 202304
  2. UPADACITINIB [Suspect]
     Active Substance: UPADACITINIB
     Indication: Colitis ulcerative
     Route: 048
  3. MESALAMINE [Concomitant]
     Active Substance: MESALAMINE

REACTIONS (10)
  - Intestinal haemorrhage [Recovered/Resolved]
  - Normochromic normocytic anaemia [Unknown]
  - Rectal haemorrhage [Recovered/Resolved]
  - Immune thrombocytopenia [Unknown]
  - Colitis ulcerative [Recovered/Resolved]
  - Pouchitis [Unknown]
  - Cholestasis [Unknown]
  - Colitis ulcerative [Unknown]
  - Transaminases increased [Unknown]
  - Immature platelet fraction increased [Unknown]

NARRATIVE: CASE EVENT DATE: 20240901
